FAERS Safety Report 11682298 (Version 3)
Quarter: 2015Q4

REPORT INFORMATION
  Report Type: Spontaneous
  Country: US (occurrence: US)
  Receive Date: 20151029
  Receipt Date: 20151222
  Transmission Date: 20160304
  Serious: Yes (Other)
  Sender: FDA-Public Use
  Company Number: US-BAYER-2015-455651

PATIENT
  Age: 42 Year
  Sex: Female
  Weight: 73 kg

DRUGS (1)
  1. MIRENA [Suspect]
     Active Substance: LEVONORGESTREL
     Indication: CONTRACEPTION
     Dosage: 20 MCG/24HR, CONT
     Route: 015
     Dates: start: 20150916, end: 20151023

REACTIONS (1)
  - Uterine perforation [Recovered/Resolved]

NARRATIVE: CASE EVENT DATE: 20151019
